FAERS Safety Report 5226062-X (Version None)
Quarter: 2007Q1

REPORT INFORMATION
  Report Type: 
  Country: None (occurrence: None)
  Receive Date: 20070129
  Receipt Date: 20070118
  Transmission Date: 20070707
  Serious: Yes (Hospitalization)
  Sender: FDA-Public Use
  Company Number: A-CH2007-13985

PATIENT
  Age: 77 Year
  Sex: Female

DRUGS (4)
  1. TRACLEER [Suspect]
     Indication: DRUG USE FOR UNKNOWN INDICATION
     Dosage: BID, ORAL
     Route: 048
     Dates: start: 20041101, end: 20061220
  2. MARCUMAR [Concomitant]
  3. L-THYROXIN (LEVOTHYROXIN SODIUM) [Concomitant]
  4. OXYGEN (OXYGEN) [Concomitant]

REACTIONS (10)
  - COUGH [None]
  - DIARRHOEA [None]
  - DIVERTICULAR PERFORATION [None]
  - DYSPNOEA [None]
  - ESCHERICHIA INFECTION [None]
  - GENERAL PHYSICAL HEALTH DETERIORATION [None]
  - HAEMODIALYSIS [None]
  - OEDEMA PERIPHERAL [None]
  - PERITONITIS BACTERIAL [None]
  - POSTOPERATIVE RENAL FAILURE [None]
